FAERS Safety Report 7772945-6 (Version None)
Quarter: 2011Q3

REPORT INFORMATION
  Report Type: 
  Country: None (occurrence: None)
  Receive Date: 20110922
  Receipt Date: 20110331
  Transmission Date: 20111222
  Serious: No
  Sender: FDA-Public Use
  Company Number: US-ASTRAZENECA-2011SE11520

PATIENT
  Age: 75 Year
  Sex: Female

DRUGS (4)
  1. LITHIUM [Concomitant]
  2. SEROQUEL [Suspect]
     Indication: BIPOLAR I DISORDER
     Route: 048
     Dates: start: 20000101
  3. SYNTHROID [Concomitant]
  4. SEROQUEL [Suspect]
     Route: 048

REACTIONS (2)
  - DIALYSIS DEVICE INSERTION [None]
  - RENAL FAILURE [None]
